FAERS Safety Report 10560267 (Version 1)
Quarter: 2014Q4

REPORT INFORMATION
  Report Type: Spontaneous
  Country: US (occurrence: US)
  Receive Date: 20141103
  Receipt Date: 20141103
  Transmission Date: 20150529
  Serious: Yes (Hospitalization)
  Sender: FDA-Public Use
  Company Number: US-DYAX CORP.-2014DX000288

PATIENT
  Age: 10 Year
  Sex: Female
  Weight: 54.48 kg

DRUGS (3)
  1. KALBITOR [Suspect]
     Active Substance: ECALLANTIDE
     Indication: HEREDITARY ANGIOEDEMA
     Route: 058
     Dates: start: 20140923, end: 20140923
  2. CINRYZE [Concomitant]
     Active Substance: HUMAN C1-ESTERASE INHIBITOR
     Indication: HEREDITARY ANGIOEDEMA
     Route: 042
  3. KALBITOR [Suspect]
     Active Substance: ECALLANTIDE
     Route: 058

REACTIONS (7)
  - Oropharyngeal pain [Recovered/Resolved]
  - Dysphagia [Recovered/Resolved]
  - Pharyngitis streptococcal [Recovered/Resolved]
  - Dehydration [Recovered/Resolved]
  - Therapeutic response decreased [Unknown]
  - Off label use [Unknown]
  - Dyspnoea [Recovered/Resolved]

NARRATIVE: CASE EVENT DATE: 201409
